FAERS Safety Report 6530893-3 (Version None)
Quarter: 2010Q1

REPORT INFORMATION
  Report Type: 
  Country: None (occurrence: None)
  Receive Date: 20100108
  Receipt Date: 20090807
  Transmission Date: 20100710
  Serious: Yes (Other)
  Sender: FDA-Public Use
  Company Number: A0784141A

PATIENT
  Age: 37 Year
  Sex: Male
  Weight: 136.4 kg

DRUGS (1)
  1. LOVAZA [Suspect]
     Indication: DRUG USE FOR UNKNOWN INDICATION
     Route: 048

REACTIONS (3)
  - ANAPHYLACTIC REACTION [None]
  - RASH [None]
  - URTICARIA [None]
